FAERS Safety Report 16066784 (Version 1)
Quarter: 2019Q1

REPORT INFORMATION
  Report Type: Spontaneous
  Country: US (occurrence: US)
  Receive Date: 20190313
  Receipt Date: 20190313
  Transmission Date: 20190418
  Serious: No
  Sender: FDA-Public Use
  Company Number: US-GLAXOSMITHKLINE-US2019042764

PATIENT
  Age: 86 Year
  Sex: Male

DRUGS (1)
  1. VOLTAREN [Suspect]
     Active Substance: DICLOFENAC SODIUM
     Indication: ARTHRALGIA
     Dosage: 1 GRAM 3 TIMES A DAY
     Route: 061
     Dates: start: 20190205

REACTIONS (4)
  - Inappropriate schedule of product administration [Unknown]
  - Blood pressure increased [Recovering/Resolving]
  - Incorrect dose administered [Unknown]
  - Off label use [Unknown]

NARRATIVE: CASE EVENT DATE: 20190221
